FAERS Safety Report 7337485-7 (Version None)
Quarter: 2011Q1

REPORT INFORMATION
  Report Type: 
  Country: None (occurrence: None)
  Receive Date: 20110308
  Receipt Date: 20110104
  Transmission Date: 20110831
  Serious: Yes (Death)
  Sender: FDA-Public Use
  Company Number: US-KINGPHARMUSA00001-K201100215

PATIENT
  Age: 51 Year
  Sex: Female

DRUGS (4)
  1. MORPHINE [Suspect]
     Indication: COMPLETED SUICIDE
     Route: 048
  2. TAPAZOLE [Suspect]
     Indication: COMPLETED SUICIDE
     Route: 048
  3. DIPHENHYDRAMINE [Suspect]
     Indication: COMPLETED SUICIDE
     Route: 048
  4. SIMVASTATIN [Suspect]
     Indication: COMPLETED SUICIDE
     Route: 048

REACTIONS (2)
  - CARDIO-RESPIRATORY ARREST [None]
  - COMPLETED SUICIDE [None]
